FAERS Safety Report 6259180-8 (Version None)
Quarter: 2009Q3

REPORT INFORMATION
  Report Type: 
  Country: None (occurrence: None)
  Receive Date: 20090707
  Receipt Date: 20090529
  Transmission Date: 20100115
  Serious: Yes (Hospitalization, Other)
  Sender: FDA-Public Use
  Company Number: US-MYLANLABS-2009S1011946

PATIENT
  Age: 50 Year
  Sex: Female

DRUGS (14)
  1. LAMOTRIGINE [Suspect]
     Indication: BIPOLAR DISORDER
     Route: 048
  2. LAMOTRIGINE [Suspect]
     Indication: SUICIDAL IDEATION
     Route: 048
  3. LAMOTRIGINE [Suspect]
     Route: 048
  4. LAMOTRIGINE [Suspect]
     Route: 048
  5. LEVOTHYROXINE [Concomitant]
  6. LITHIUM [Concomitant]
  7. DILTIAZEM [Concomitant]
  8. CLONAZEPAM [Concomitant]
  9. CLONAZEPAM [Concomitant]
  10. ZOPIDEM [Concomitant]
  11. RISPERIDONE [Concomitant]
     Dates: end: 20090101
  12. OXYCODONE [Concomitant]
  13. DIPHENHYDRAMINE HCL [Concomitant]
  14. TYLENOL (CAPLET) [Concomitant]

REACTIONS (1)
  - MENINGITIS ASEPTIC [None]
